FAERS Safety Report 7060662-X (Version None)
Quarter: 2010Q4

REPORT INFORMATION
  Report Type: 
  Country: None (occurrence: None)
  Receive Date: 20101025
  Receipt Date: 20101018
  Transmission Date: 20110411
  Serious: Yes (Hospitalization, Other)
  Sender: FDA-Public Use
  Company Number: US-ELI_LILLY_AND_COMPANY-US201002003448

PATIENT
  Sex: Female
  Weight: 87.075 kg

DRUGS (11)
  1. BYETTA [Suspect]
     Dosage: 10 UG, 3/D
     Route: 065
     Dates: start: 20070523, end: 20080728
  2. INSULIN [Concomitant]
     Dosage: UNK, UNKNOWN
  3. METFORMIN [Concomitant]
     Dosage: 875 MG, 3/D
  4. DEMEROL                                 /CAN/ [Concomitant]
     Dosage: UNK, UNKNOWN
  5. COLACE [Concomitant]
     Indication: CONSTIPATION
     Dosage: 200 MG, AS NEEDED
  6. ZOLOFT [Concomitant]
     Dosage: 50 MG, DAILY (1/D)
     Route: 048
  7. FOSAMAX [Concomitant]
     Dosage: UNK, UNKNOWN
  8. ASPIRIN                                 /SCH/ [Concomitant]
     Dosage: 81 MG, DAILY (1/D)
     Route: 048
  9. SIMVASTATIN [Concomitant]
     Dosage: UNK, UNKNOWN
  10. LISINOPRIL [Concomitant]
     Dosage: 10 MG, DAILY (1/D)
     Route: 048
  11. LORTAB [Concomitant]
     Indication: PAIN
     Dosage: UNK, AS NEEDED

REACTIONS (3)
  - DRUG PRESCRIBING ERROR [None]
  - OFF LABEL USE [None]
  - PANCREATITIS [None]
